FAERS Safety Report 10157389 (Version 2)
Quarter: 2014Q4

REPORT INFORMATION
  Report Type: Spontaneous
  Country: IT (occurrence: IT)
  Receive Date: 20140507
  Receipt Date: 20141022
  Transmission Date: 20150528
  Serious: Yes (Hospitalization)
  Sender: FDA-Public Use
  Company Number: IT-FRI-1000067124

PATIENT
  Age: 69 Year
  Sex: Female

DRUGS (4)
  1. COAPROVEL [Concomitant]
     Active Substance: HYDROCHLOROTHIAZIDE\IRBESARTAN
     Dosage: 150/12.5 MG
     Route: 048
     Dates: start: 20140218, end: 20140321
  2. PANTOPRAZOLO [Concomitant]
     Route: 048
  3. CARDIOASPIRIN [Concomitant]
     Active Substance: ASPIRIN
     Route: 048
     Dates: start: 20140218, end: 20140403
  4. NEBIVOLOL [Suspect]
     Active Substance: NEBIVOLOL
     Indication: HYPERTENSIVE HEART DISEASE
     Dosage: 5 MG
     Route: 048
     Dates: start: 20140218, end: 20140320

REACTIONS (3)
  - Hypoaesthesia [Recovering/Resolving]
  - Paraesthesia oral [Recovering/Resolving]
  - Headache [Recovering/Resolving]

NARRATIVE: CASE EVENT DATE: 20140320
